FAERS Safety Report 19616438 (Version 5)
Quarter: 2021Q4

REPORT INFORMATION
  Report Type: Report from Study
  Country: US (occurrence: US)
  Receive Date: 20210728
  Receipt Date: 20211025
  Transmission Date: 20220303
  Serious: Yes (Hospitalization, Other)
  Sender: FDA-Public Use
  Company Number: US-BRISTOL-MYERS SQUIBB COMPANY-BMS-2021-072757

PATIENT
  Age: 83 Year
  Sex: Female

DRUGS (1)
  1. ABATACEPT [Suspect]
     Active Substance: ABATACEPT
     Indication: Rheumatoid arthritis
     Dosage: 125 MILLIGRAM, ONE PEN, QWK
     Route: 058

REACTIONS (4)
  - Fall [Unknown]
  - Femur fracture [Unknown]
  - Lower limb fracture [Unknown]
  - Accident [Unknown]

NARRATIVE: CASE EVENT DATE: 20210529
